FAERS Safety Report 10985009 (Version 1)
Quarter: 2015Q2

REPORT INFORMATION
  Report Type: Spontaneous
  Country: CA (occurrence: CA)
  Receive Date: 20150403
  Receipt Date: 20150403
  Transmission Date: 20150821
  Serious: Yes (Death)
  Sender: FDA-Public Use
  Company Number: CA-ASTRAZENECA-2015SE30843

PATIENT
  Age: 33991 Day
  Sex: Male
  Weight: 68 kg

DRUGS (6)
  1. EXELON [Concomitant]
     Active Substance: RIVASTIGMINE TARTRATE
  2. RAMERON [Concomitant]
  3. FLOMAX [Concomitant]
     Active Substance: TAMSULOSIN HYDROCHLORIDE
     Indication: ILL-DEFINED DISORDER
     Route: 048
     Dates: start: 2005
  4. PREDNISONE. [Concomitant]
     Active Substance: PREDNISONE
     Indication: PEMPHIGUS
     Route: 048
     Dates: start: 2010
  5. SEROQUEL [Suspect]
     Active Substance: QUETIAPINE FUMARATE
     Route: 048
     Dates: start: 20150303, end: 20150303
  6. CRANBERRY GEL [Concomitant]
     Indication: RENAL FAILURE
     Route: 048
     Dates: start: 201409

REACTIONS (4)
  - Intentional product misuse [Recovered/Resolved]
  - Hypophagia [Recovered/Resolved]
  - Cerebrovascular accident [Fatal]
  - Loss of consciousness [Recovered/Resolved]

NARRATIVE: CASE EVENT DATE: 20150303
